FAERS Safety Report 11379709 (Version 1)
Quarter: 2015Q3

REPORT INFORMATION
  Report Type: Spontaneous
  Country: US (occurrence: US)
  Receive Date: 20150814
  Receipt Date: 20150814
  Transmission Date: 20151125
  Serious: No
  Sender: FDA-Public Use
  Company Number: US-ASTRAZENECA-2015SE75728

PATIENT

DRUGS (1)
  1. BYETTA [Suspect]
     Active Substance: EXENATIDE
     Dosage: 250 UG 1 ML
     Route: 065

REACTIONS (3)
  - Blood glucose abnormal [Unknown]
  - Blood pressure abnormal [Unknown]
  - Product quality issue [Unknown]
